FAERS Safety Report 6038515-5 (Version None)
Quarter: 2009Q1

REPORT INFORMATION
  Report Type: 
  Country: None (occurrence: None)
  Receive Date: 20090115
  Receipt Date: 20080527
  Transmission Date: 20090719
  Serious: No
  Sender: FDA-Public Use
  Company Number: US-KINGPHARMUSA00001-K200800624

PATIENT
  Sex: Female

DRUGS (1)
  1. EPIPEN [Suspect]
     Indication: URTICARIA
     Dosage: UNK, PRN
     Route: 030

REACTIONS (2)
  - DRUG INEFFECTIVE [None]
  - TREMOR [None]
